FAERS Safety Report 11223890 (Version 3)
Quarter: 2015Q3

REPORT INFORMATION
  Report Type: Spontaneous
  Country: FR (occurrence: FR)
  Receive Date: 20150629
  Receipt Date: 20150930
  Transmission Date: 20151125
  Serious: Yes (Hospitalization, Other)
  Sender: FDA-Public Use
  Company Number: FR-ASTRAZENECA-2015SE62399

PATIENT
  Age: 20975 Day
  Sex: Male
  Weight: 92 kg

DRUGS (7)
  1. ARIXTRA [Concomitant]
     Active Substance: FONDAPARINUX SODIUM
     Dates: start: 20150604
  2. ASPEGIC [Concomitant]
     Active Substance: ASPIRIN DL-LYSINE
     Dates: start: 20150604, end: 20150604
  3. BISOPROLOL [Concomitant]
     Active Substance: BISOPROLOL
     Dates: start: 20150604
  4. ASPEGIC [Concomitant]
     Active Substance: ASPIRIN DL-LYSINE
     Dates: start: 20150606
  5. TAHOR [Concomitant]
     Active Substance: ATORVASTATIN CALCIUM
     Dates: start: 20150604, end: 20150917
  6. BRILIQUE [Suspect]
     Active Substance: TICAGRELOR
     Indication: ACUTE CORONARY SYNDROME
     Route: 048
     Dates: start: 20150604, end: 20150617
  7. LOVENOX [Concomitant]
     Active Substance: ENOXAPARIN SODIUM
     Dates: start: 20150605

REACTIONS (5)
  - Eosinophilia [Not Recovered/Not Resolved]
  - Pericarditis [Unknown]
  - Lividity [Unknown]
  - Toxic skin eruption [Unknown]
  - Rash maculo-papular [Not Recovered/Not Resolved]

NARRATIVE: CASE EVENT DATE: 20150605
